FAERS Safety Report 9551010 (Version 3)
Quarter: 2014Q1

REPORT INFORMATION
  Report Type: Report from Study
  Country: US (occurrence: US)
  Receive Date: 20130924
  Receipt Date: 20140213
  Transmission Date: 20141002
  Serious: Yes (Death, Other)
  Sender: FDA-Public Use
  Company Number: US-SANOFI-AVENTIS-2013SA052052

PATIENT
  Age: 18 Year
  Sex: Male

DRUGS (5)
  1. AUBAGIO [Suspect]
     Indication: MULTIPLE SCLEROSIS
     Dosage: PRODUCT STARTED EIGHT OR NINE DAYS AGO.
     Route: 048
     Dates: start: 20130511, end: 20130802
  2. TOPIRAMATE [Concomitant]
     Indication: PRODUCT USED FOR UNKNOWN INDICATION
     Route: 048
  3. ZOFRAN [Concomitant]
     Indication: NAUSEA
     Route: 048
  4. SUMATRIPTAN [Concomitant]
     Indication: MIGRAINE
     Route: 065
  5. COLESTYRAMINE [Concomitant]
     Indication: DRUG DETOXIFICATION
     Route: 065
     Dates: start: 201308, end: 201308

REACTIONS (13)
  - Death [Fatal]
  - Headache [Unknown]
  - Hypoaesthesia [Unknown]
  - Asthenia [Unknown]
  - Cognitive disorder [Unknown]
  - Hepatic enzyme abnormal [Unknown]
  - Malaise [Unknown]
  - Fatigue [Not Recovered/Not Resolved]
  - Chromaturia [Not Recovered/Not Resolved]
  - Abdominal discomfort [Not Recovered/Not Resolved]
  - Migraine [Not Recovered/Not Resolved]
  - Diarrhoea [Not Recovered/Not Resolved]
  - Vomiting [Unknown]
